FAERS Safety Report 8086337-6 (Version None)
Quarter: 2012Q1

REPORT INFORMATION
  Report Type: 
  Country: None (occurrence: None)
  Receive Date: 20120128
  Receipt Date: 20110426
  Transmission Date: 20120608
  Serious: No
  Sender: FDA-Public Use
  Company Number: US-ABBOTT-11P-163-0721937-00

PATIENT
  Age: 21 Year
  Sex: Female

DRUGS (6)
  1. HUMIRA [Suspect]
  2. HUMIRA [Suspect]
     Indication: CROHN'S DISEASE
     Dates: start: 20110411, end: 20110411
  3. HUMIRA [Suspect]
     Dates: start: 20110425, end: 20110425
  4. IMODIUM [Concomitant]
     Indication: DIARRHOEA
  5. ACETAMINOPHEN [Concomitant]
     Indication: PAIN
  6. ADIPEX-P [Concomitant]
     Indication: WEIGHT DECREASED

REACTIONS (3)
  - SKIN WARM [None]
  - RASH [None]
  - RASH MACULO-PAPULAR [None]
